FAERS Safety Report 15707721 (Version 1)
Quarter: 2018Q4

REPORT INFORMATION
  Report Type: Spontaneous
  Country: US (occurrence: US)
  Receive Date: 20181211
  Receipt Date: 20181211
  Transmission Date: 20190205
  Serious: Yes (Other)
  Sender: FDA-Public Use
  Company Number: None

PATIENT
  Age: 64 Year
  Sex: Male
  Weight: 112.5 kg

DRUGS (13)
  1. NAPROXEN SODIUM. [Concomitant]
     Active Substance: NAPROXEN SODIUM
  2. FERROUS GLUNATE [Concomitant]
  3. LYRICA [Concomitant]
     Active Substance: PREGABALIN
  4. ROPINIROLE. [Concomitant]
     Active Substance: ROPINIROLE
  5. VIT B-12 [Concomitant]
  6. FUROSEMIDE. [Concomitant]
     Active Substance: FUROSEMIDE
  7. POTASSIUM [Concomitant]
     Active Substance: POTASSIUM
  8. LISINOPRIL. [Concomitant]
     Active Substance: LISINOPRIL
  9. ATORVASTATIN [Concomitant]
     Active Substance: ATORVASTATIN
  10. VIT  D-3 [Concomitant]
  11. FARXIGA [Suspect]
     Active Substance: DAPAGLIFLOZIN PROPANEDIOL
     Indication: TYPE 2 DIABETES MELLITUS
     Dosage: ?          QUANTITY:1 TABLET(S);?
     Route: 048
     Dates: start: 20180701
  12. KRILL OIL [Concomitant]
     Active Substance: DIETARY SUPPLEMENT
  13. HIGHLANDS KLEG CRAMPS HOMEOPAHTIC CRAMP REMEDY [Concomitant]

REACTIONS (6)
  - Secretion discharge [None]
  - Pain in extremity [None]
  - Furuncle [None]
  - Fournier^s gangrene [None]
  - Acne [None]
  - Pruritus genital [None]

NARRATIVE: CASE EVENT DATE: 20181201
